FAERS Safety Report 12122036 (Version 1)
Quarter: 2016Q1

REPORT INFORMATION
  Report Type: Spontaneous
  Country: US (occurrence: US)
  Receive Date: 20160226
  Receipt Date: 20160226
  Transmission Date: 20160526
  Serious: No
  Sender: FDA-Public Use
  Company Number: US-ALLERGAN-1504343US

PATIENT
  Age: 70 Year
  Sex: Female

DRUGS (2)
  1. LOTEMAX [Concomitant]
     Active Substance: LOTEPREDNOL ETABONATE
     Indication: EYE DISORDER
     Dosage: BID
     Dates: start: 201502
  2. REFRESH OPTIVE [Suspect]
     Active Substance: CARBOXYMETHYLCELLULOSE SODIUM\GLYCERIN
     Indication: DRY EYE
     Dosage: 1 GTT, UNK
     Route: 047
     Dates: start: 20150301, end: 20150301

REACTIONS (1)
  - Eye pain [Unknown]
